FAERS Safety Report 7131124-6 (Version None)
Quarter: 2010Q4

REPORT INFORMATION
  Report Type: 
  Country: None (occurrence: None)
  Receive Date: 20101201
  Receipt Date: 20101117
  Transmission Date: 20110411
  Serious: Yes (Hospitalization)
  Sender: FDA-Public Use
  Company Number: GXKR2010GB13028

PATIENT
  Sex: Male
  Weight: 72 kg

DRUGS (6)
  1. METHOTREXATE [Suspect]
     Indication: RHEUMATOID ARTHRITIS
     Dosage: 10 MG, UNK
     Route: 048
     Dates: start: 19940105, end: 20100806
  2. HUMIRA [Suspect]
     Indication: RHEUMATOID ARTHRITIS
     Dosage: 40 MG, UNK
     Route: 058
     Dates: start: 20060619, end: 20100806
  3. ALENDRONIC ACID [Concomitant]
     Route: 048
  4. ATENOLOL [Concomitant]
     Route: 048
  5. LISINOPRIL [Concomitant]
     Route: 048
  6. OMEPRAZOLE [Concomitant]
     Route: 048

REACTIONS (5)
  - ANAEMIA [None]
  - ASCITES [None]
  - LYMPHADENOPATHY [None]
  - PYREXIA [None]
  - THROMBOCYTOPENIA [None]
